FAERS Safety Report 9185072 (Version 2)
Quarter: 2013Q2

REPORT INFORMATION
  Report Type: Report from Study
  Country: GB (occurrence: GB)
  Receive Date: 20130325
  Receipt Date: 20130408
  Transmission Date: 20140414
  Serious: Yes (Death, Other)
  Sender: FDA-Public Use
  Company Number: GB-ABBOTT-13P-167-1066376-00

PATIENT
  Sex: Female
  Weight: 54 kg

DRUGS (1)
  1. HUMIRA [Suspect]
     Indication: RHEUMATOID ARTHRITIS
     Route: 058
     Dates: start: 20070917, end: 20090801

REACTIONS (6)
  - Asthenia [Fatal]
  - Rheumatoid arthritis [Fatal]
  - Cardiac failure congestive [Fatal]
  - Osteoporosis [Fatal]
  - Nephrotic syndrome [Fatal]
  - Carcinoma in situ of skin [Unknown]
